FAERS Safety Report 22697236 (Version 2)
Quarter: 2023Q4

REPORT INFORMATION
  Report Type: Spontaneous
  Country: JP (occurrence: None)
  Receive Date: 20230712
  Receipt Date: 20231009
  Transmission Date: 20240109
  Serious: Yes (Death, Other)
  Sender: FDA-Public Use
  Company Number: 2023A156932

PATIENT
  Age: 74 Year
  Sex: Male

DRUGS (13)
  1. ONDEXXYA [Suspect]
     Active Substance: ANDEXANET ALFA
     Indication: Gastric ulcer haemorrhage
     Dosage: 400 MG + 384 MG
     Route: 042
     Dates: start: 20230703
  2. CEFTRIAXONE SODIUM [Concomitant]
     Active Substance: CEFTRIAXONE SODIUM
  3. RIVAROXABAN [Concomitant]
     Active Substance: RIVAROXABAN
     Dosage: IN THE MORNING
     Route: 048
  4. RIVAROXABAN [Concomitant]
     Active Substance: RIVAROXABAN
     Dosage: DOSE UNKNOWN
     Route: 048
  5. FLECAINIDE ACETATE [Concomitant]
     Active Substance: FLECAINIDE ACETATE
     Dosage: IN THE MORNING AND EVENING
     Route: 048
  6. BISOPROLOL [Concomitant]
     Active Substance: BISOPROLOL\BISOPROLOL FUMARATE
     Dosage: IN THE MORNING
     Route: 048
  7. AZILSARTAN KAMEDOXOMIL [Concomitant]
     Active Substance: AZILSARTAN KAMEDOXOMIL
     Dosage: IN THE MORNING
     Route: 048
  8. ESOMEPRAZOLE [Concomitant]
     Active Substance: ESOMEPRAZOLE
     Dosage: IN THE MORNING
     Route: 048
  9. BENZBROMARONE [Concomitant]
     Active Substance: BENZBROMARONE
     Dosage: IN THE MORNING
     Route: 048
  10. MAGNESIUM OXIDE [Concomitant]
     Active Substance: MAGNESIUM OXIDE
     Dosage: IN THE MORNING AND EVENING
     Route: 048
  11. CARBAZOCHROME [Concomitant]
     Active Substance: CARBAZOCHROME
     Dosage: DOSE UNKNOWN UNKNOWN
     Dates: start: 20230703
  12. TRANEXAMIC ACID [Concomitant]
     Active Substance: TRANEXAMIC ACID
     Dosage: DOSE UNKNOWN UNKNOWN
     Dates: start: 20230703
  13. THROMBIN [Concomitant]
     Active Substance: THROMBIN
     Dosage: DOSE UNKNOWN UNKNOWN
     Dates: start: 20230703

REACTIONS (6)
  - Cerebral infarction [Fatal]
  - Myocardial infarction [Fatal]
  - Gastric ulcer haemorrhage [Fatal]
  - Ventricular fibrillation [Fatal]
  - Acute kidney injury [Unknown]
  - Thrombosis [Unknown]

NARRATIVE: CASE EVENT DATE: 20230703
